FAERS Safety Report 15017148 (Version 1)
Quarter: 2018Q2

REPORT INFORMATION
  Report Type: Spontaneous
  Country: US (occurrence: US)
  Receive Date: 20180531
  Receipt Date: 20180531
  Transmission Date: 20180711
  Serious: Yes (Hospitalization)
  Sender: FDA-Public Use
  Company Number: None

PATIENT
  Age: 13 Year
  Sex: Female
  Weight: 40.5 kg

DRUGS (2)
  1. AMITRIPTYLINE [Concomitant]
     Active Substance: AMITRIPTYLINE
  2. PPD SHOT [Suspect]
     Active Substance: TUBERCULIN PURIFIED PROTEIN DERIVATIVE
     Indication: TUBERCULIN TEST
     Dates: start: 20180417, end: 20180417

REACTIONS (12)
  - Dizziness [None]
  - Vomiting [None]
  - Myelitis transverse [None]
  - Hyperventilation [None]
  - Hyperhidrosis [None]
  - Gait disturbance [None]
  - Nausea [None]
  - Paresis [None]
  - Balance disorder [None]
  - Muscular weakness [None]
  - Migraine [None]
  - Urinary retention [None]

NARRATIVE: CASE EVENT DATE: 20180417
